FAERS Safety Report 21054841 (Version 3)
Quarter: 2022Q3

REPORT INFORMATION
  Report Type: Spontaneous
  Country: JP (occurrence: JP)
  Receive Date: 20220707
  Receipt Date: 20220914
  Transmission Date: 20221027
  Serious: Yes (Life-Threatening)
  Sender: FDA-Public Use
  Company Number: JP-SA-SAC20220705001117

PATIENT
  Age: 54 Year
  Sex: Female
  Weight: 33.4 kg

DRUGS (54)
  1. MYSTAN [Suspect]
     Active Substance: CLOBAZAM
     Indication: Status epilepticus
     Dosage: 3 MG, QD
     Route: 048
     Dates: start: 20220425, end: 20220501
  2. MYSTAN [Suspect]
     Active Substance: CLOBAZAM
     Dosage: 3.2 MG, QD
     Route: 048
  3. MYSTAN [Suspect]
     Active Substance: CLOBAZAM
     Dosage: 15 MG, QD
     Route: 048
     Dates: start: 20220601
  4. MYSTAN [Suspect]
     Active Substance: CLOBAZAM
     Dosage: 6 MG, QD
     Route: 048
     Dates: start: 20220502, end: 20220509
  5. MYSTAN [Suspect]
     Active Substance: CLOBAZAM
     Dosage: 9 MG, QD
     Route: 048
     Dates: start: 20220510, end: 20220516
  6. MYSTAN [Suspect]
     Active Substance: CLOBAZAM
     Dosage: 12 MG, QD
     Route: 048
     Dates: start: 20220517, end: 20220531
  7. CLONAZEPAM [Suspect]
     Active Substance: CLONAZEPAM
     Indication: Product used for unknown indication
     Dosage: 3.2 MG, QD
     Route: 048
     Dates: start: 20220330, end: 20220413
  8. CLONAZEPAM [Suspect]
     Active Substance: CLONAZEPAM
     Dosage: 3 MG, QD
     Route: 048
     Dates: start: 20220413, end: 20220419
  9. CLONAZEPAM [Suspect]
     Active Substance: CLONAZEPAM
     Dosage: 3.5 MG, QD
     Route: 048
     Dates: start: 20220419, end: 20220511
  10. CLONAZEPAM [Suspect]
     Active Substance: CLONAZEPAM
     Dosage: 2.5 MG, QD
     Route: 048
     Dates: start: 20220511, end: 20220518
  11. CLONAZEPAM [Suspect]
     Active Substance: CLONAZEPAM
     Dosage: 1.5 MG, QD
     Route: 048
     Dates: start: 20220518, end: 20220601
  12. PHENYTOIN [Suspect]
     Active Substance: PHENYTOIN
     Indication: Status epilepticus
     Dosage: 180 MG, QD
     Route: 048
     Dates: end: 20220420
  13. PHENYTOIN [Suspect]
     Active Substance: PHENYTOIN
     Dosage: 150 MG, QD
     Route: 048
     Dates: start: 20220420, end: 20220608
  14. PHENYTOIN [Suspect]
     Active Substance: PHENYTOIN
     Dosage: 60 MG, QD
     Route: 048
     Dates: start: 20220714
  15. PHENYTOIN [Suspect]
     Active Substance: PHENYTOIN
     Dosage: 90 MG, QD
     Route: 048
     Dates: start: 20220704
  16. LAMOTRIGINE [Suspect]
     Active Substance: LAMOTRIGINE
     Indication: Status epilepticus
     Dosage: 400 MG, QD
     Route: 048
     Dates: start: 20211013, end: 20220803
  17. POTASSIUM BROMIDE [Suspect]
     Active Substance: POTASSIUM BROMIDE
     Indication: Status epilepticus
     Dosage: 1 G, QD
     Route: 048
     Dates: start: 20220330, end: 20220408
  18. POTASSIUM BROMIDE [Suspect]
     Active Substance: POTASSIUM BROMIDE
     Dosage: 0.5 G, QD
     Route: 048
     Dates: start: 20220409, end: 20220428
  19. POTASSIUM BROMIDE [Suspect]
     Active Substance: POTASSIUM BROMIDE
     Dosage: 0.75 G, QD
     Route: 048
     Dates: start: 20220429, end: 20220803
  20. POTASSIUM BROMIDE [Suspect]
     Active Substance: POTASSIUM BROMIDE
     Dosage: 0.7 G, QD
     Route: 048
  21. MIDAZOLAM [Suspect]
     Active Substance: MIDAZOLAM
     Indication: Status epilepticus
     Dosage: 0.09 MG/KG, QD
     Route: 040
     Dates: start: 20220419, end: 20220419
  22. MIDAZOLAM [Suspect]
     Active Substance: MIDAZOLAM
     Dosage: 0.15 MG/KG, QD
     Route: 042
     Dates: start: 20220502, end: 20220502
  23. MIDAZOLAM [Suspect]
     Active Substance: MIDAZOLAM
     Dosage: 0.06 MG/KG, QD
     Route: 040
     Dates: start: 20220420, end: 20220420
  24. MIDAZOLAM [Suspect]
     Active Substance: MIDAZOLAM
     Dosage: 0.9 MG/KG, QD
     Dates: start: 20220420, end: 20220420
  25. MIDAZOLAM [Suspect]
     Active Substance: MIDAZOLAM
     Dosage: 0.12 MG/KG, QD
     Route: 040
     Dates: start: 20220714, end: 20220714
  26. MIDAZOLAM [Suspect]
     Active Substance: MIDAZOLAM
     Dosage: 0.15 MG/KG, QD
     Route: 042
     Dates: start: 20220502, end: 20220502
  27. MIDAZOLAM [Suspect]
     Active Substance: MIDAZOLAM
     Dosage: 0.12 MG/KG, QD
     Route: 042
     Dates: start: 20220509, end: 20220509
  28. MIDAZOLAM [Suspect]
     Active Substance: MIDAZOLAM
     Dosage: 0.09 MG/KG, QD
     Route: 042
     Dates: start: 20220511, end: 20220511
  29. MIDAZOLAM [Suspect]
     Active Substance: MIDAZOLAM
     Dosage: 0.06 MG/KG, QD
     Route: 042
     Dates: start: 20220524, end: 20220524
  30. MIDAZOLAM [Suspect]
     Active Substance: MIDAZOLAM
     Dosage: 0.03 MG/KG, QD
     Route: 040
     Dates: start: 20220714, end: 20220714
  31. MIDAZOLAM [Suspect]
     Active Substance: MIDAZOLAM
     Dosage: UNK
     Route: 042
     Dates: start: 20220530, end: 20220530
  32. MIDAZOLAM [Suspect]
     Active Substance: MIDAZOLAM
     Dosage: 0.12 MG/KG, QD
     Route: 040
     Dates: start: 20220714, end: 20220714
  33. MIDAZOLAM [Suspect]
     Active Substance: MIDAZOLAM
     Dosage: 0.059 MG/KG, QD
     Route: 040
     Dates: start: 20220420, end: 20220420
  34. MIDAZOLAM [Suspect]
     Active Substance: MIDAZOLAM
     Dosage: UNK
     Route: 041
     Dates: start: 20220420, end: 20220422
  35. MIDAZOLAM [Suspect]
     Active Substance: MIDAZOLAM
     Dosage: 3 MG, QD
     Route: 040
     Dates: start: 20220427, end: 20220427
  36. MIDAZOLAM [Suspect]
     Active Substance: MIDAZOLAM
     Dosage: 2 MG, QD
     Route: 042
     Dates: start: 20220502, end: 20220502
  37. MIDAZOLAM [Suspect]
     Active Substance: MIDAZOLAM
     Dosage: 1.5 MG, QD
     Route: 040
     Dates: start: 20220511, end: 20220511
  38. MIDAZOLAM [Suspect]
     Active Substance: MIDAZOLAM
     Dosage: 0.03 MG/KG, QD
     Route: 042
     Dates: start: 20220526, end: 20220526
  39. MIDAZOLAM [Suspect]
     Active Substance: MIDAZOLAM
     Dosage: 0.12 MG/KG, QD
     Route: 040
  40. DIAZEPAM [Suspect]
     Active Substance: DIAZEPAM
     Indication: Status epilepticus
     Dosage: 10 MG, QD
     Route: 054
     Dates: start: 20220419, end: 20220419
  41. DIAZEPAM [Suspect]
     Active Substance: DIAZEPAM
     Dosage: 10 MG, QD
     Route: 054
     Dates: start: 20220420, end: 20220420
  42. DIAZEPAM [Suspect]
     Active Substance: DIAZEPAM
     Dosage: 10 MG, BID
     Route: 054
     Dates: start: 20220714, end: 20220714
  43. DIAZEPAM [Suspect]
     Active Substance: DIAZEPAM
     Dosage: UNK
     Route: 054
     Dates: start: 20220422
  44. MOSAPRIDE CITRATE [Concomitant]
     Active Substance: MOSAPRIDE CITRATE
     Indication: Product used for unknown indication
     Dosage: UNK
     Route: 065
  45. MAGNESIUM OXIDE [Concomitant]
     Active Substance: MAGNESIUM OXIDE
     Indication: Product used for unknown indication
     Dosage: UNK
     Route: 065
  46. MAGNESIUM OXIDE [Concomitant]
     Active Substance: MAGNESIUM OXIDE
  47. CARBOCYSTEINE [Concomitant]
     Active Substance: CARBOCYSTEINE
     Indication: Product used for unknown indication
     Dosage: UNK
     Route: 065
     Dates: start: 20220414, end: 20220608
  48. LANSOPRAZOLE [Concomitant]
     Active Substance: LANSOPRAZOLE
     Indication: Product used for unknown indication
     Dosage: UNK
     Route: 065
     Dates: start: 20220419, end: 20220420
  49. CHLORAL HYDRATE [Concomitant]
     Active Substance: CHLORAL HYDRATE
     Indication: Product used for unknown indication
     Dosage: UNK
     Route: 065
     Dates: start: 20220419, end: 20220419
  50. LANSOPRAZOLE [Concomitant]
     Active Substance: LANSOPRAZOLE
     Indication: Product used for unknown indication
     Dosage: UNK
     Route: 048
     Dates: start: 20220420, end: 20220601
  51. AMBROXOL HYDROCHLORIDE [Concomitant]
     Active Substance: AMBROXOL HYDROCHLORIDE
     Indication: Product used for unknown indication
     Dosage: UNK
     Route: 054
     Dates: start: 20220414, end: 20220608
  52. ROZEREM [Concomitant]
     Active Substance: RAMELTEON
     Indication: Product used for unknown indication
     Dosage: UNK
     Route: 065
     Dates: start: 20220601, end: 20220815
  53. MOSAPRIDE [Concomitant]
     Active Substance: MOSAPRIDE
     Indication: Product used for unknown indication
     Route: 065
  54. SODIUM PICOSULFATE [Concomitant]
     Active Substance: SODIUM PICOSULFATE
     Indication: Product used for unknown indication
     Route: 048
     Dates: start: 20220422

REACTIONS (5)
  - Irregular sleep wake rhythm disorder [Recovered/Resolved]
  - Oxygen saturation decreased [Recovering/Resolving]
  - PCO2 increased [Recovered/Resolved]
  - Respiratory rate decreased [Recovering/Resolving]
  - Blood albumin decreased [Recovering/Resolving]

NARRATIVE: CASE EVENT DATE: 20220420
